FAERS Safety Report 4544300-3 (Version None)
Quarter: 2005Q1

REPORT INFORMATION
  Report Type: 
  Country: None (occurrence: None)
  Receive Date: 20050104
  Receipt Date: 20041223
  Transmission Date: 20050727
  Serious: Yes (Other)
  Sender: FDA-Public Use
  Company Number: GBWYE285616DEC04

PATIENT
  Sex: Female
  Weight: 66.5 kg

DRUGS (2)
  1. ENBREL [Suspect]
     Indication: RHEUMATOID ARTHRITIS
     Route: 058
     Dates: start: 20030913, end: 20040801
  2. ACETAMINOPHEN [Concomitant]
     Dosage: AS REQUIRED

REACTIONS (3)
  - DYSPHAGIA [None]
  - NASAL CONGESTION [None]
  - SPEECH DISORDER [None]
